FAERS Safety Report 5938560-1 (Version None)
Quarter: 2008Q4

REPORT INFORMATION
  Report Type: 
  Country: None (occurrence: None)
  Receive Date: 20081103
  Receipt Date: 20081024
  Transmission Date: 20090506
  Serious: Yes (Other)
  Sender: FDA-Public Use
  Company Number: PHEH2008US09689

PATIENT
  Sex: Male

DRUGS (3)
  1. EXELON [Suspect]
     Dosage: 9.5 MG, UNK
  2. NAMENDA [Suspect]
     Dosage: 20 MG, UNK
  3. SEROQUEL [Suspect]
     Dosage: 25 MG, UNK

REACTIONS (2)
  - DEMENTIA [None]
  - RESTLESSNESS [None]
